FAERS Safety Report 23448189 (Version 4)
Quarter: 2024Q2

REPORT INFORMATION
  Report Type: Spontaneous
  Country: NL (occurrence: NL)
  Receive Date: 20240126
  Receipt Date: 20240412
  Transmission Date: 20240716
  Serious: Yes (Death, Hospitalization)
  Sender: FDA-Public Use
  Company Number: NL-BoehringerIngelheim-2024-BI-004679

PATIENT
  Age: 77 Year
  Sex: Male
  Weight: 92 kg

DRUGS (1)
  1. SPEVIGO [Suspect]
     Active Substance: SPESOLIMAB-SBZO
     Indication: Pustular psoriasis
     Dates: start: 20240122, end: 20240122

REACTIONS (3)
  - Cardiac failure [Fatal]
  - Pulmonary sepsis [Fatal]
  - Respiratory failure [Unknown]

NARRATIVE: CASE EVENT DATE: 20240124
